FAERS Safety Report 11135503 (Version 1)
Quarter: 2015Q2

REPORT INFORMATION
  Report Type: Spontaneous
  Country: US (occurrence: None)
  Receive Date: 20150522
  Receipt Date: 20150522
  Transmission Date: 20150821
  Serious: No
  Sender: FDA-Public Use
  Company Number: None

PATIENT
  Age: 72 Year
  Sex: Female
  Weight: 54.43 kg

DRUGS (7)
  1. OMPRAMAZOLE [Concomitant]
  2. CALC IUM [Concomitant]
  3. VITAMIN D [Concomitant]
     Active Substance: CHOLECALCIFEROL
  4. PROLIA [Suspect]
     Active Substance: DENOSUMAB
     Indication: OSTEOPOROSIS
     Dosage: SINGLE INJECTION, INJECTION, 1X6 MONTHS, GIVEN INTO/UNDER THE SKIN
  5. BREO ELLIPTA [Concomitant]
     Active Substance: FLUTICASONE FUROATE\VILANTEROL TRIFENATATE
  6. SPIRIVA [Concomitant]
     Active Substance: TIOTROPIUM BROMIDE MONOHYDRATE
  7. SPIRONOLACTONE W/ HCT [Concomitant]

REACTIONS (8)
  - Vertigo [None]
  - Constipation [None]
  - Gastrointestinal pain [None]
  - Unevaluable event [None]
  - Diarrhoea [None]
  - Back pain [None]
  - Nausea [None]
  - Rash [None]

NARRATIVE: CASE EVENT DATE: 20150504
